FAERS Safety Report 5747578-3 (Version None)
Quarter: 2008Q2

REPORT INFORMATION
  Report Type: 
  Country: None (occurrence: None)
  Receive Date: 20080523
  Receipt Date: 20080509
  Transmission Date: 20081010
  Serious: Yes (Hospitalization)
  Sender: FDA-Public Use
  Company Number: SE-AVENTIS-200812105EU

PATIENT
  Age: 79 Year
  Sex: Female

DRUGS (26)
  1. ENOXAPARIN SODIUM [Suspect]
     Route: 058
     Dates: start: 20070911, end: 20070914
  2. BENZODIAZEPINE DERIVATIVES [Concomitant]
     Indication: PREMEDICATION
     Dates: start: 20070910, end: 20070910
  3. ACETAMINOPHEN [Concomitant]
     Dates: start: 20070910, end: 20070910
  4. ACETAMINOPHEN [Concomitant]
     Dates: start: 20070911
  5. OXYCONTIN [Concomitant]
     Dates: start: 20070910, end: 20070910
  6. OXYCONTIN [Concomitant]
     Dates: start: 20070911
  7. PROPOFOL [Concomitant]
     Indication: SEDATION
     Dates: start: 20070910, end: 20070910
  8. EPHEDRINE HYDROCHLORIDE [Concomitant]
     Indication: HYPOTENSION
     Dates: start: 20070910, end: 20070910
  9. PROMITEN                           /00134201/ [Concomitant]
     Dates: start: 20070910, end: 20070910
  10. MARCAINE                           /00330101/ [Concomitant]
     Indication: SPINAL ANAESTHESIA
     Dates: start: 20070910, end: 20070910
  11. CLOXACILLIN SODIUM [Concomitant]
     Indication: BACTERIAL INFECTION
     Dates: start: 20070910, end: 20070910
  12. CYKLOKAPRON [Concomitant]
     Dates: start: 20070910, end: 20070910
  13. NAROPIN [Concomitant]
     Dates: start: 20070910, end: 20070910
  14. ADRENALINE [Concomitant]
     Dates: start: 20070910, end: 20070910
  15. TORADOL [Concomitant]
     Dates: start: 20070910, end: 20070910
  16. PLASMODEX [Concomitant]
     Dates: start: 20070910, end: 20070910
  17. GLUCOSE [Concomitant]
     Dates: start: 20070910, end: 20070910
  18. SODIUM CHLORIDE [Concomitant]
     Dates: start: 20070910, end: 20070910
  19. PRIMPERAN                          /00041901/ [Concomitant]
     Indication: NAUSEA
     Dates: start: 20070910, end: 20070913
  20. PRIMPERAN                          /00041901/ [Concomitant]
     Dates: start: 20070913, end: 20070913
  21. SIMVASTATIN [Concomitant]
  22. LINK [Concomitant]
     Dates: start: 20070912, end: 20070912
  23. LINK [Concomitant]
     Dates: start: 20070915, end: 20070915
  24. LAXOBERAL [Concomitant]
     Dates: start: 20070913, end: 20070914
  25. LAKTULOS [Concomitant]
     Dates: start: 20070914, end: 20070914
  26. OXYNORM [Concomitant]
     Dates: start: 20070911, end: 20070915

REACTIONS (1)
  - COAGULATION FACTOR INCREASED [None]
